FAERS Safety Report 8293874-8 (Version None)
Quarter: 2012Q2

REPORT INFORMATION
  Report Type: 
  Country: None (occurrence: None)
  Receive Date: 20120413
  Receipt Date: 20120402
  Transmission Date: 20120825
  Serious: Yes (Other)
  Sender: FDA-Public Use
  Company Number: AUR-APL-2012-01291

PATIENT
  Age: 38 Year
  Sex: Female

DRUGS (12)
  1. LANTUS [Concomitant]
  2. METFORMIN HCL [Suspect]
     Indication: TYPE 2 DIABETES MELLITUS
     Dosage: (2500 MG,1 D),ORAL ; 1000 MG (1000 MG,1 IN 1 D),ORAL
     Route: 048
     Dates: start: 20110527, end: 20120215
  3. METFORMIN HCL [Suspect]
     Indication: DIABETES MELLITUS INADEQUATE CONTROL
     Dosage: (2500 MG,1 D),ORAL ; 1000 MG (1000 MG,1 IN 1 D),ORAL
     Route: 048
     Dates: start: 20110527, end: 20120215
  4. METFORMIN HCL [Suspect]
     Indication: TYPE 2 DIABETES MELLITUS
     Dosage: (2500 MG,1 D),ORAL ; 1000 MG (1000 MG,1 IN 1 D),ORAL
     Route: 048
     Dates: start: 20120216
  5. METFORMIN HCL [Suspect]
     Indication: DIABETES MELLITUS INADEQUATE CONTROL
     Dosage: (2500 MG,1 D),ORAL ; 1000 MG (1000 MG,1 IN 1 D),ORAL
     Route: 048
     Dates: start: 20120216
  6. CYCLOBENZAPRINE [Concomitant]
  7. LISINOPRIL [Concomitant]
  8. LOPID [Suspect]
     Indication: TYPE 2 DIABETES MELLITUS
     Dosage: 1200 MG (600 MG,2 IN 1 D),ORAL
     Route: 048
     Dates: start: 20120215, end: 20120216
  9. LOPID [Suspect]
     Indication: TYPE V HYPERLIPIDAEMIA
     Dosage: 1200 MG (600 MG,2 IN 1 D),ORAL
     Route: 048
     Dates: start: 20120215, end: 20120216
  10. LOPID [Suspect]
     Indication: DIABETES MELLITUS INADEQUATE CONTROL
     Dosage: 1200 MG (600 MG,2 IN 1 D),ORAL
     Route: 048
     Dates: start: 20120215, end: 20120216
  11. GLIMEPIRIDE [Concomitant]
  12. LOVASTATIN [Concomitant]

REACTIONS (2)
  - DIARRHOEA [None]
  - DIABETES MELLITUS INADEQUATE CONTROL [None]
